FAERS Safety Report 9957367 (Version 1)
Quarter: 2014Q1

REPORT INFORMATION
  Report Type: Report from Study
  Country: US (occurrence: US)
  Receive Date: 20140304
  Receipt Date: 20140304
  Transmission Date: 20141002
  Serious: No
  Sender: FDA-Public Use
  Company Number: US-ABBVIE-13P-163-1094376-00

PATIENT
  Sex: Female
  Weight: 74.91 kg

DRUGS (9)
  1. HUMIRA [Suspect]
     Indication: RHEUMATOID ARTHRITIS
     Dates: end: 2013
  2. HUMIRA [Suspect]
     Dates: start: 201305
  3. LEVOTHYROXINE [Concomitant]
     Indication: HYPOTHYROIDISM
  4. ATENOLOL [Concomitant]
     Indication: HYPERTENSION
  5. CELEBREX [Concomitant]
     Indication: RHEUMATOID ARTHRITIS
  6. FOLIC ACID [Concomitant]
     Indication: VITAMIN SUPPLEMENTATION
  7. MULTIVITAMIN [Concomitant]
     Indication: VITAMIN SUPPLEMENTATION
  8. CALCIUM CITRATE WITH VITAMIN D [Concomitant]
     Indication: SUPPLEMENTATION THERAPY
  9. ANTIBIOTICS [Concomitant]
     Indication: MITRAL VALVE PROLAPSE

REACTIONS (7)
  - Vitamin D deficiency [Unknown]
  - Rheumatoid arthritis [Not Recovered/Not Resolved]
  - Inflammation [Unknown]
  - Spinal deformity [Not Recovered/Not Resolved]
  - Glycosylated haemoglobin increased [Unknown]
  - Osteopenia [Not Recovered/Not Resolved]
  - Diabetes mellitus [Not Recovered/Not Resolved]
